FAERS Safety Report 4527362-9 (Version None)
Quarter: 2004Q4

REPORT INFORMATION
  Report Type: 
  Country: None (occurrence: None)
  Receive Date: 20041130
  Receipt Date: 20040910
  Transmission Date: 20050328
  Serious: No
  Sender: FDA-Public Use
  Company Number: FABR-10695

PATIENT
  Age: 51 Year
  Sex: Male
  Weight: 57.27 kg

DRUGS (2)
  1. FABRAZYME [Suspect]
     Indication: FABRY'S DISEASE
     Dosage: 70 MG Q2WKS IV
     Route: 042
     Dates: start: 20040622, end: 20040706
  2. FABRAZYME [Suspect]
     Indication: FABRY'S DISEASE
     Dosage: 35 MG Q2WKS  IV
     Route: 042
     Dates: start: 20040928

REACTIONS (5)
  - CHEST PAIN [None]
  - CONVULSION [None]
  - HEADACHE [None]
  - PARAESTHESIA [None]
  - PYREXIA [None]
